FAERS Safety Report 23679138 (Version 1)
Quarter: 2024Q1

REPORT INFORMATION
  Report Type: Spontaneous
  Country: US (occurrence: US)
  Receive Date: 20240327
  Receipt Date: 20240327
  Transmission Date: 20240409
  Serious: Yes (Hospitalization, Other)
  Sender: FDA-Public Use
  Company Number: US-ALEMBIC PHARMACUETICALS LIMITED-2024SCAL000302

PATIENT

DRUGS (4)
  1. LITHIUM CARBONATE [Suspect]
     Active Substance: LITHIUM CARBONATE
     Indication: Bipolar I disorder
     Dosage: UNK
     Route: 065
  2. CLOZAPINE [Suspect]
     Active Substance: CLOZAPINE
     Indication: Schizophrenia
     Dosage: UNK
     Route: 065
  3. VALPROIC ACID [Concomitant]
     Active Substance: VALPROIC ACID
     Indication: Bipolar I disorder
     Dosage: 500 MILLIGRAM, BID
     Route: 065
  4. HALOPERIDOL [Concomitant]
     Active Substance: HALOPERIDOL
     Indication: Bipolar I disorder
     Dosage: 15 MG, BID
     Route: 065

REACTIONS (6)
  - Acute psychosis [Unknown]
  - Acute kidney injury [Unknown]
  - Toxicity to various agents [Unknown]
  - Lethargy [Unknown]
  - Mental status changes [Unknown]
  - Blood creatinine increased [Unknown]
